FAERS Safety Report 21652610 (Version 1)
Quarter: 2022Q4

REPORT INFORMATION
  Report Type: Spontaneous
  Country: US (occurrence: None)
  Receive Date: 20221124
  Receipt Date: 20221124
  Transmission Date: 20230113
  Serious: Yes (Hospitalization)
  Sender: FDA-Public Use
  Company Number: None

PATIENT
  Age: 69 Year
  Sex: Female

DRUGS (9)
  1. HYQVIA [Suspect]
     Active Substance: HUMAN IMMUNOGLOBULIN G\HYALURONIDASE RECOMBINANT HUMAN
     Indication: Hypogammaglobulinaemia
     Dosage: OTHER STRENGTH : 2.5GM/25M;?OTHER QUANTITY : 2.5GM/25ML;?
     Route: 058
     Dates: start: 20221104
  2. ACETAMINOPHEN TAB [Concomitant]
  3. AJOVY INJ [Concomitant]
  4. DIPHENHYDRAMINE CAP [Concomitant]
  5. EPINEPHRINE PEN [Concomitant]
  6. LEVOTHYROXIN TAB [Concomitant]
  7. LIDOCAINE/PRILOCAINE CRE [Concomitant]
  8. PNEUMOVAX 23 [Concomitant]
     Active Substance: PNEUMOCOCCAL VACCINE, POLYVALENT 23
  9. UBRELVY TAB [Concomitant]

REACTIONS (1)
  - Pneumonia [None]

NARRATIVE: CASE EVENT DATE: 20221120
